FAERS Safety Report 6204222-9 (Version None)
Quarter: 2009Q2

REPORT INFORMATION
  Report Type: 
  Country: None (occurrence: None)
  Receive Date: 20090527
  Receipt Date: 20090520
  Transmission Date: 20091009
  Serious: Yes (Death)
  Sender: FDA-Public Use
  Company Number: US-GILEAD-2009-0022077

PATIENT
  Sex: Female
  Weight: 57.204 kg

DRUGS (10)
  1. LETAIRIS [Suspect]
     Indication: PULMONARY ARTERIAL HYPERTENSION
     Route: 048
     Dates: start: 20090317
  2. CARDIZEM CD [Concomitant]
  3. BUMEX [Concomitant]
  4. PRINIVIL [Concomitant]
  5. IMDUR [Concomitant]
  6. ADVAIR HFA [Concomitant]
  7. SPIRIVA [Concomitant]
  8. XOPENEX [Concomitant]
  9. PREDNISONE [Concomitant]
  10. PRILOSEC [Concomitant]

REACTIONS (1)
  - DEATH [None]
